FAERS Safety Report 25234164 (Version 1)
Quarter: 2025Q2

REPORT INFORMATION
  Report Type: Spontaneous
  Country: US (occurrence: None)
  Receive Date: 20250423
  Receipt Date: 20250423
  Transmission Date: 20250717
  Serious: Yes (Other)
  Sender: FDA-CTU
  Company Number: None

PATIENT
  Age: 60 Year
  Sex: Female

DRUGS (3)
  1. DOXYCYCLINE HYCLATE [Suspect]
     Active Substance: DOXYCYCLINE HYCLATE
  2. VANCOMYCIN [Suspect]
     Active Substance: VANCOMYCIN
  3. SKYRIZI [Suspect]
     Active Substance: RISANKIZUMAB-RZAA

REACTIONS (5)
  - Cardiac failure congestive [None]
  - Breast cellulitis [None]
  - Rash [None]
  - Skin irritation [None]
  - Condition aggravated [None]

NARRATIVE: CASE EVENT DATE: 20250321
